FAERS Safety Report 8488683-0 (Version None)
Quarter: 2012Q3

REPORT INFORMATION
  Report Type: 
  Country: None (occurrence: None)
  Receive Date: 20120705
  Receipt Date: 20120627
  Transmission Date: 20120928
  Serious: Yes (Hospitalization)
  Sender: FDA-Public Use
  Company Number: JP-B.I. PHARMACEUTICALS,INC./RIDGEFIELD-2012-BP-14642NB

PATIENT
  Age: 76 Year
  Sex: Male

DRUGS (6)
  1. PRADAXA [Suspect]
     Indication: ATRIAL FIBRILLATION
     Dosage: 220 MG
     Route: 048
     Dates: start: 20120402, end: 20120416
  2. BISOPROLOL FUMARATE [Concomitant]
     Dosage: NR
     Route: 065
  3. VALSARTAN  AND HYDROCHLOROTHIAZIDE [Concomitant]
     Indication: HYPERTENSION
     Route: 048
  4. DISOPYRAMIDE [Concomitant]
     Indication: ATRIAL FIBRILLATION
     Route: 048
  5. URINORM [Concomitant]
     Indication: HYPERURICAEMIA
     Route: 048
  6. ATELEC [Concomitant]
     Indication: HYPERTENSION
     Route: 048

REACTIONS (2)
  - HAEMORRHOID OPERATION [None]
  - LARGE INTESTINAL HAEMORRHAGE [None]
